FAERS Safety Report 5541496-1 (Version None)
Quarter: 2007Q4

REPORT INFORMATION
  Report Type: 
  Country: None (occurrence: None)
  Receive Date: 20071210
  Receipt Date: 20071205
  Transmission Date: 20080405
  Serious: Yes (Other)
  Sender: FDA-Public Use
  Company Number: CA-JNJFOC-20071201031

PATIENT
  Sex: Male

DRUGS (4)
  1. REMICADE [Suspect]
     Indication: CROHN'S DISEASE
     Dosage: 30 INFUSIONS
     Route: 042
  2. IMURAN [Concomitant]
  3. FLAGYL [Concomitant]
  4. METHASOL [Concomitant]

REACTIONS (1)
  - METASTASES TO LIVER [None]
